FAERS Safety Report 10014638 (Version 5)
Quarter: 2014Q2

REPORT INFORMATION
  Report Type: Report from Study
  Country: NL (occurrence: NL)
  Receive Date: 20140317
  Receipt Date: 20140422
  Transmission Date: 20141212
  Serious: Yes (Hospitalization)
  Sender: FDA-Public Use
  Company Number: NL-MERCK-1403NLD004839

PATIENT
  Age: 67 Year
  Sex: Male
  Weight: 86 kg

DRUGS (13)
  1. BLINDED EZETIMIBE (+) SIMVASTATIN [Suspect]
     Indication: ACUTE CORONARY SYNDROME
     Dosage: UNK
     Route: 048
     Dates: start: 20090429
  2. BLINDED THERAPY [Suspect]
     Indication: ACUTE CORONARY SYNDROME
     Dosage: UNK
     Route: 048
     Dates: start: 20090429
  3. SIMVASTATIN [Suspect]
     Dosage: 40 MG DAILY
     Route: 048
     Dates: start: 20140227
  4. ALBUTEROL SULFATE (+) IPRATROPIUM BROMIDE [Suspect]
     Dosage: UNK
     Route: 055
     Dates: start: 20140227
  5. FRAXIPARINE [Suspect]
     Dosage: UNK
     Route: 058
     Dates: start: 20140308
  6. PANTOPRAZOLE [Suspect]
     Dosage: 40MG DAILY
     Route: 042
     Dates: start: 20140228
  7. CEFTRIAXONE SODIUM [Suspect]
     Dosage: 2000
     Route: 042
     Dates: start: 20140226
  8. HALOPERIDOL [Suspect]
     Dosage: 3 MG DAILY
     Route: 042
     Dates: start: 20140228
  9. METOPROLOL SUCCINATE [Suspect]
     Dosage: 75 MG DAILY
     Route: 048
     Dates: start: 20140310
  10. ACENOCOUMAROL [Suspect]
     Dosage: 1MG DAILY
     Route: 048
     Dates: start: 20090428
  11. METOPROLOL [Suspect]
     Dosage: 100 DAILY
     Route: 048
     Dates: start: 20070619
  12. DICLOFENAC [Suspect]
     Dosage: 150 DAILY
     Route: 048
     Dates: start: 20140221, end: 20140226
  13. HYDROCHLOROTHIAZIDE [Suspect]
     Dosage: 25MG DAILY
     Route: 048
     Dates: start: 20140221

REACTIONS (1)
  - Urosepsis [Recovered/Resolved]
